FAERS Safety Report 5527455-3 (Version None)
Quarter: 2007Q4

REPORT INFORMATION
  Report Type: 
  Country: None (occurrence: None)
  Receive Date: 20071123
  Receipt Date: 20071107
  Transmission Date: 20080405
  Serious: Yes (Hospitalization)
  Sender: FDA-Public Use
  Company Number: DSA_61753_2007

PATIENT
  Sex: Male

DRUGS (2)
  1. DIAZEPAM [Suspect]
     Indication: CONVULSION
     Dosage: 15 MG RECTALLY
     Route: 054
  2. MULTIPLE UNSPECIFIED CONCOMITANT MEDICATIONS [Concomitant]

REACTIONS (3)
  - CONVULSION [None]
  - DEVICE FAILURE [None]
  - DRUG INEFFECTIVE [None]
